FAERS Safety Report 5454915-6 (Version None)
Quarter: 2007Q3

REPORT INFORMATION
  Report Type: 
  Country: None (occurrence: None)
  Receive Date: 20070917
  Receipt Date: 20061019
  Transmission Date: 20080115
  Serious: Yes (Other)
  Sender: FDA-Public Use
  Company Number: US-ASTRAZENECA-2006UW20274

PATIENT
  Age: 20 Year
  Sex: Female
  Weight: 85 kg

DRUGS (3)
  1. SEROQUEL [Suspect]
     Indication: BIPOLAR DISORDER
     Route: 048
  2. ZOLOFT [Concomitant]
     Route: 048
  3. ADDERALL [Concomitant]
     Route: 048

REACTIONS (1)
  - AMNESIA [None]
